FAERS Safety Report 10302851 (Version 3)
Quarter: 2014Q3

REPORT INFORMATION
  Report Type: Spontaneous
  Country: US (occurrence: US)
  Receive Date: 20140714
  Receipt Date: 20140724
  Transmission Date: 20150326
  Serious: Yes (Other)
  Sender: FDA-Public Use
  Company Number: US-MYLANLABS-2014S1016164

PATIENT
  Age: 60 Year
  Sex: Female

DRUGS (2)
  1. LEVOTHYROXINE SODIUM TABLETS, USP [Suspect]
     Active Substance: LEVOTHYROXINE SODIUM
     Indication: HYPOTHYROIDISM
     Dates: start: 20140410, end: 201405
  2. LEVOTHYROXINE SODIUM TABLETS, USP [Suspect]
     Active Substance: LEVOTHYROXINE SODIUM
     Indication: HYPOTHYROIDISM
     Route: 048
     Dates: start: 20140521, end: 20140608

REACTIONS (8)
  - Underdose [Recovered/Resolved]
  - Dizziness [Recovered/Resolved]
  - Musculoskeletal discomfort [Recovered/Resolved]
  - Disturbance in attention [Recovered/Resolved]
  - Hyperthyroidism [Recovered/Resolved]
  - Thirst [Recovered/Resolved]
  - Weight increased [Recovered/Resolved]
  - Eye irritation [Recovered/Resolved]

NARRATIVE: CASE EVENT DATE: 201404
